FAERS Safety Report 23304488 (Version 1)
Quarter: 2023Q4

REPORT INFORMATION
  Report Type: Spontaneous
  Country: US (occurrence: US)
  Receive Date: 20231218
  Receipt Date: 20231218
  Transmission Date: 20240109
  Serious: Yes (Hospitalization)
  Sender: FDA-Public Use
  Company Number: US-AMAROX PHARMA-HET2023US03539

PATIENT
  Age: 89 Year
  Sex: Male

DRUGS (1)
  1. LINEZOLID [Suspect]
     Active Substance: LINEZOLID
     Indication: Pneumonia
     Dosage: 600 MILLIGRAM, BID
     Route: 048

REACTIONS (1)
  - Purpura [Recovered/Resolved]
